FAERS Safety Report 7930499-5 (Version None)
Quarter: 2011Q4

REPORT INFORMATION
  Report Type: 
  Country: None (occurrence: None)
  Receive Date: 20111108
  Receipt Date: 20101109
  Transmission Date: 20120403
  Serious: Yes (Other)
  Sender: FDA-Public Use
  Company Number: PHHY2010US75452

PATIENT
  Age: 89 Year
  Sex: Male

DRUGS (14)
  1. REVLIMID [Suspect]
     Indication: MULTIPLE MYELOMA
     Dosage: 25 MG DAILY, ORAL 10 MG DAILY, ORAL 05 MG, QD, ORAL
     Route: 048
     Dates: end: 20100930
  2. REVLIMID [Suspect]
     Indication: MULTIPLE MYELOMA
     Dosage: 25 MG DAILY, ORAL 10 MG DAILY, ORAL 05 MG, QD, ORAL
     Route: 048
     Dates: start: 20100401, end: 20100701
  3. REVLIMID [Suspect]
     Indication: MULTIPLE MYELOMA
     Dosage: 25 MG DAILY, ORAL 10 MG DAILY, ORAL 05 MG, QD, ORAL
     Route: 048
     Dates: start: 20100215, end: 20100410
  4. POTASSIUM CHLORIDE (POSTASSIUM CHLORIDE) [Concomitant]
  5. COZAAR [Concomitant]
  6. LOVASTIN (LOVASTATIN) [Concomitant]
  7. AVODART [Concomitant]
  8. LASIX [Concomitant]
  9. ZOMETA [Suspect]
     Dosage: , ORAL
     Route: 048
  10. OMEPRAZOLE [Concomitant]
  11. AMIODARONE HCL [Concomitant]
  12. LEVOTHYROXINE SODIUM [Concomitant]
  13. ASPIRIN [Concomitant]
  14. METOPROLOL TARTRATE [Concomitant]

REACTIONS (2)
  - RENAL IMPAIRMENT [None]
  - RASH [None]
